FAERS Safety Report 24307423 (Version 3)
Quarter: 2024Q4

REPORT INFORMATION
  Report Type: Spontaneous
  Country: DE (occurrence: DE)
  Receive Date: 20240911
  Receipt Date: 20241120
  Transmission Date: 20250115
  Serious: Yes (Hospitalization)
  Sender: NOVARTIS
  Company Number: DE-ROCHE-10000035093

PATIENT
  Age: 45 Year
  Sex: Female
  Weight: 110 kg

DRUGS (3)
  1. OFATUMUMAB [Suspect]
     Active Substance: OFATUMUMAB
     Indication: Multiple sclerosis relapse
     Dosage: 20 MG, Q4W
     Route: 058
     Dates: start: 20221209
  2. OCREVUS [Suspect]
     Active Substance: OCRELIZUMAB
     Indication: Relapsing multiple sclerosis
     Dosage: 300 MG
     Route: 042
     Dates: start: 20220405, end: 20220426
  3. LEVOTHYROXINE [Concomitant]
     Active Substance: LEVOTHYROXINE
     Indication: Hyperthyroidism
     Dosage: 125 UG, QD
     Route: 048

REACTIONS (2)
  - Headache [Recovered/Resolved]
  - Hemihypoaesthesia [Recovered/Resolved]

NARRATIVE: CASE EVENT DATE: 20240703
